FAERS Safety Report 18298761 (Version 1)
Quarter: 2020Q3

REPORT INFORMATION
  Report Type: Spontaneous
  Country: GB (occurrence: GB)
  Receive Date: 20200923
  Receipt Date: 20200923
  Transmission Date: 20201103
  Serious: Yes (Disabling)
  Sender: FDA-Public Use
  Company Number: GB-REGENERON PHARMACEUTICALS, INC.-2020-77638

PATIENT

DRUGS (3)
  1. OXYBUPROCAINE [Concomitant]
     Active Substance: BENOXINATE
     Indication: LOCAL ANAESTHESIA
     Dosage: 0.5 ML, UNK
     Route: 061
  2. POVIDONE [Concomitant]
     Active Substance: POVIDONE
     Indication: INFECTION PROPHYLAXIS
     Dosage: 0.4 ML, UNK
     Route: 061
     Dates: start: 20200721, end: 20200821
  3. EYLEA [Suspect]
     Active Substance: AFLIBERCEPT
     Indication: NEOVASCULAR AGE-RELATED MACULAR DEGENERATION
     Dosage: UNK; RIGHT EYE; TOTAL DOSE OF EYLEA IS 1. DATE OF LAST DOSE OF EYLEA ADMINISTERED PRIOR TO EVENT IS
     Dates: start: 20200721, end: 20200721

REACTIONS (9)
  - Toxic anterior segment syndrome [Unknown]
  - Vitritis [Recovered/Resolved]
  - Vision blurred [Unknown]
  - Eye pain [Unknown]
  - Anterior chamber cell [Unknown]
  - Corneal oedema [Unknown]
  - Conjunctivitis [Unknown]
  - Swelling of eyelid [Unknown]
  - Photophobia [Unknown]

NARRATIVE: CASE EVENT DATE: 20200721
